FAERS Safety Report 14994167 (Version 2)
Quarter: 2018Q2

REPORT INFORMATION
  Report Type: Report from Study
  Country: DE (occurrence: DE)
  Receive Date: 20180611
  Receipt Date: 20180617
  Transmission Date: 20180711
  Serious: Yes (Death, Life-Threatening, Hospitalization, Other)
  Sender: FDA-Public Use
  Company Number: DE-BRISTOL-MYERS SQUIBB COMPANY-BMS-2018-048306

PATIENT
  Age: 74 Year
  Sex: Male
  Weight: 79.5 kg

DRUGS (2)
  1. DASATINIB. [Suspect]
     Active Substance: DASATINIB
     Indication: ACUTE MYELOID LEUKAEMIA
     Dosage: 100 MG, UNK
     Route: 065
     Dates: start: 20180520, end: 20180521
  2. CYTARABINE. [Suspect]
     Active Substance: CYTARABINE
     Indication: ACUTE MYELOID LEUKAEMIA
     Dosage: 1 DF 200MG/SQM
     Route: 065
     Dates: start: 20180511, end: 20180518

REACTIONS (7)
  - Ileus [Not Recovered/Not Resolved]
  - Atrial flutter [Unknown]
  - Multiple organ dysfunction syndrome [Fatal]
  - Intestinal ischaemia [Not Recovered/Not Resolved]
  - Renal failure [Unknown]
  - Sepsis [Unknown]
  - Peritonitis [Unknown]

NARRATIVE: CASE EVENT DATE: 20180520
